FAERS Safety Report 4581238-X (Version None)
Quarter: 2005Q1

REPORT INFORMATION
  Report Type: 
  Country: None (occurrence: None)
  Receive Date: 20050214
  Receipt Date: 20040908
  Transmission Date: 20050727
  Serious: No
  Sender: FDA-Public Use
  Company Number: US-GLAXOSMITHKLINE-A0524920A

PATIENT
  Age: 74 Year
  Sex: Male

DRUGS (7)
  1. LAMICTAL [Suspect]
     Indication: BIPOLAR DISORDER
     Dosage: 25MG PER DAY
     Route: 048
     Dates: start: 20040908
  2. VASOTEC [Concomitant]
  3. POTASSIUM CL [Concomitant]
  4. LITHIUM [Concomitant]
  5. ACETYLSALICYLIC ACID [Concomitant]
     Dosage: 81MG UNKNOWN
     Route: 065
  6. GLUCOPHAGE [Concomitant]
  7. AMIODARONE [Concomitant]
     Route: 065

REACTIONS (1)
  - PRURITUS [None]
